FAERS Safety Report 7587074-4 (Version None)
Quarter: 2011Q3

REPORT INFORMATION
  Report Type: 
  Country: None (occurrence: None)
  Receive Date: 20110701
  Receipt Date: 20110623
  Transmission Date: 20111222
  Serious: Yes (Death, Other)
  Sender: FDA-Public Use
  Company Number: VE-GENZYME-CLOF-1001544

PATIENT
  Sex: Male
  Weight: 44 kg

DRUGS (4)
  1. CLOLAR [Suspect]
     Dosage: 52 MG/M2, QD
     Route: 042
     Dates: start: 20100405, end: 20100101
  2. CLOLAR [Suspect]
     Indication: ACUTE LYMPHOCYTIC LEUKAEMIA
     Dosage: 52 MG/M2, QD
     Route: 042
     Dates: start: 20100222, end: 20100101
  3. CLOLAR [Suspect]
     Dosage: 52 MG/M2, QD
     Route: 042
     Dates: start: 20100503, end: 20100101
  4. CLOLAR [Suspect]
     Dosage: 52 MG/M2, QD
     Route: 042
     Dates: start: 20100524, end: 20100101

REACTIONS (5)
  - SEPSIS [None]
  - FEBRILE NEUTROPENIA [None]
  - ACUTE LEUKAEMIA [None]
  - CELLULITIS [None]
  - NEUTROPENIA [None]
